FAERS Safety Report 23891053 (Version 1)
Quarter: 2024Q2

REPORT INFORMATION
  Report Type: Report from Study
  Country: CA (occurrence: CA)
  Receive Date: 20240523
  Receipt Date: 20240523
  Transmission Date: 20240716
  Serious: Yes (Death)
  Sender: FDA-Public Use
  Company Number: CA-BAYER-2024A074332

PATIENT
  Sex: Female

DRUGS (1)
  1. EYLEA [Suspect]
     Active Substance: AFLIBERCEPT
     Indication: Age-related macular degeneration
     Dosage: 4-5 WEEKS, 40 MG/ML, SOLUTION FOR INJECTION
     Dates: start: 20150909, end: 20240515

REACTIONS (1)
  - Death [Fatal]
